FAERS Safety Report 6782345-3 (Version None)
Quarter: 2010Q2

REPORT INFORMATION
  Report Type: 
  Country: None (occurrence: None)
  Receive Date: 20100621
  Receipt Date: 20100614
  Transmission Date: 20101027
  Serious: Yes (Other)
  Sender: FDA-Public Use
  Company Number: US-JNJFOC-20100406971

PATIENT
  Sex: Male
  Weight: 85.28 kg

DRUGS (7)
  1. LEVAQUIN [Suspect]
     Indication: PNEUMONIA
     Route: 048
  2. SYNTHROID [Concomitant]
     Indication: HYPOTHYROIDISM
     Route: 065
  3. MICARDIS HCT [Concomitant]
     Indication: HYPERTENSION
     Route: 065
  4. LIPITOR [Concomitant]
     Indication: HYPERLIPIDAEMIA
     Route: 065
  5. SOTALOL [Concomitant]
     Indication: ATRIAL FIBRILLATION
     Route: 065
  6. FLOMAX [Concomitant]
     Indication: BENIGN PROSTATIC HYPERPLASIA
     Route: 065
  7. AVODART [Concomitant]
     Indication: BENIGN PROSTATIC HYPERPLASIA
     Route: 065

REACTIONS (3)
  - TENDON RUPTURE [None]
  - TENDONITIS [None]
  - WOUND DEHISCENCE [None]
